FAERS Safety Report 6203050-8 (Version None)
Quarter: 2009Q2

REPORT INFORMATION
  Report Type: 
  Country: None (occurrence: None)
  Receive Date: 20090521
  Receipt Date: 20090521
  Transmission Date: 20091009
  Serious: No
  Sender: FDA-Public Use
  Company Number: None

PATIENT
  Age: 62 Year
  Sex: Male
  Weight: 150 kg

DRUGS (1)
  1. LIPITOR [Suspect]
     Indication: BLOOD CHOLESTEROL
     Dosage: 10 MG ONE ADAY BUCCAL
     Route: 002
     Dates: start: 20070401, end: 20090424

REACTIONS (8)
  - FACIAL PALSY [None]
  - GAIT DISTURBANCE [None]
  - GENITAL RASH [None]
  - LOSS OF CONTROL OF LEGS [None]
  - MEMORY IMPAIRMENT [None]
  - MYALGIA [None]
  - PAIN IN EXTREMITY [None]
  - RASH [None]
